FAERS Safety Report 23528136 (Version 1)
Quarter: 2024Q1

REPORT INFORMATION
  Report Type: Spontaneous
  Country: CA (occurrence: CA)
  Receive Date: 20240215
  Receipt Date: 20240215
  Transmission Date: 20240409
  Serious: Yes (Hospitalization)
  Sender: FDA-Public Use
  Company Number: CA-FreseniusKabi-FK202402476

PATIENT
  Age: 75 Year
  Sex: Male
  Weight: 84 kg

DRUGS (19)
  1. PIPERACILLIN SODIUM\TAZOBACTAM SODIUM [Suspect]
     Active Substance: PIPERACILLIN SODIUM\TAZOBACTAM SODIUM
     Indication: Pneumonia
     Dosage: DOSAGE FORM: POWDER FOR SOLUTION INTRAVENOUS
     Route: 042
  2. PIPERACILLIN SODIUM\TAZOBACTAM SODIUM [Suspect]
     Active Substance: PIPERACILLIN SODIUM\TAZOBACTAM SODIUM
     Indication: Cellulitis
  3. CEFTRIAXONE [Suspect]
     Active Substance: CEFTRIAXONE\CEFTRIAXONE SODIUM
     Indication: Cellulitis
     Dosage: DOSAGE FORM: POWDER FOR SOLUTION INTRAMUSCULAR
     Route: 042
  4. ACETAMINOPHEN [Concomitant]
     Active Substance: ACETAMINOPHEN
     Indication: Product used for unknown indication
     Dosage: FORM: NOT SPECIFIED
  5. BISACODYL [Concomitant]
     Active Substance: BISACODYL
     Indication: Product used for unknown indication
     Dosage: FORM: NOT SPECIFIED
  6. CALCIUM [Concomitant]
     Active Substance: CALCIUM
     Indication: Product used for unknown indication
     Dosage: FORM: NOT SPECIFIED
  7. DEXTROMETHORPHAN [Concomitant]
     Active Substance: DEXTROMETHORPHAN
     Indication: Product used for unknown indication
     Dosage: FORM: NOT SPECIFIED
  8. GLYCERIN [Concomitant]
     Active Substance: GLYCERIN
     Indication: Product used for unknown indication
     Dosage: FORM: NOT SPECIFIED
  9. HYDRALAZINE [Concomitant]
     Active Substance: HYDRALAZINE HYDROCHLORIDE
     Indication: Product used for unknown indication
     Dosage: FORM: NOT SPECIFIED
  10. HYDROMORPHONE [Concomitant]
     Active Substance: HYDROMORPHONE
     Indication: Product used for unknown indication
     Dosage: FORM: NOT SPECIFIED
  11. POLYETHYLENE GLYCOL [Concomitant]
     Active Substance: POLYETHYLENE GLYCOL
     Indication: Product used for unknown indication
     Dosage: FORM: NOT SPECIFIED
  12. SENNA [Concomitant]
     Active Substance: SENNA LEAF\SENNOSIDES\SENNOSIDES A AND B
     Indication: Product used for unknown indication
     Dosage: FORM: NOT SPECIFIED
  13. SYMBICORT [Concomitant]
     Active Substance: BUDESONIDE\FORMOTEROL FUMARATE DIHYDRATE
     Indication: Product used for unknown indication
     Dosage: FORM: NOT SPECIFIED?ROUTE: UNKNOWN
  14. UMECLIDINIUM BROMIDE [Concomitant]
     Active Substance: UMECLIDINIUM BROMIDE
     Indication: Product used for unknown indication
  15. ZOPICLONE [Concomitant]
     Active Substance: ZOPICLONE
     Indication: Product used for unknown indication
     Dosage: FORM: TABLETS
  16. TYLENOL WITH CODEINE [Concomitant]
     Active Substance: ACETAMINOPHEN\CODEINE PHOSPHATE
     Indication: Product used for unknown indication
     Dosage: TABLET
  17. PERCOCET [Concomitant]
     Active Substance: ACETAMINOPHEN\OXYCODONE HYDROCHLORIDE
     Indication: Product used for unknown indication
     Dosage: TABLET
  18. ELIQUIS [Concomitant]
     Active Substance: APIXABAN
     Indication: Product used for unknown indication
     Dosage: TABLET
  19. ATORVASTATIN CALCIUM [Concomitant]
     Active Substance: ATORVASTATIN CALCIUM
     Indication: Product used for unknown indication
     Dosage: TABLET

REACTIONS (3)
  - Clostridium test positive [Recovering/Resolving]
  - Pneumonia [Recovering/Resolving]
  - Productive cough [Recovering/Resolving]
